FAERS Safety Report 7995813-3 (Version None)
Quarter: 2011Q4

REPORT INFORMATION
  Report Type: 
  Country: None (occurrence: None)
  Receive Date: 20111220
  Receipt Date: 20111212
  Transmission Date: 20120403
  Serious: Yes (Other)
  Sender: FDA-Public Use
  Company Number: DE-ASTRAZENECA-2009SE05945

PATIENT
  Age: 70 Year
  Sex: Female
  Weight: 48 kg

DRUGS (2)
  1. CHEMOTHERAPY [Concomitant]
     Indication: OESOPHAGEAL CARCINOMA
  2. ARIMIDEX [Suspect]
     Indication: BREAST CANCER
     Route: 048
     Dates: start: 20090717

REACTIONS (11)
  - OESOPHAGEAL CARCINOMA [None]
  - ALOPECIA [None]
  - WEIGHT DECREASED [None]
  - DIARRHOEA [None]
  - ARTHRALGIA [None]
  - PROCEDURAL PAIN [None]
  - EROSIVE OESOPHAGITIS [None]
  - ABDOMINAL DISCOMFORT [None]
  - DYSPHAGIA [None]
  - MUSCULOSKELETAL STIFFNESS [None]
  - BLOOD CHOLESTEROL INCREASED [None]
